FAERS Safety Report 10098886 (Version 1)
Quarter: 2014Q2

REPORT INFORMATION
  Report Type: Spontaneous
  Country: None (occurrence: GB)
  Receive Date: 20140423
  Receipt Date: 20140423
  Transmission Date: 20141212
  Serious: Yes (Other)
  Sender: FDA-Public Use
  Company Number: GB-THROMBOGENICS INC-JET-2014-251

PATIENT
  Age: 60 Year
  Sex: Female

DRUGS (3)
  1. JETREA [Suspect]
     Indication: VITREOUS ADHESIONS
     Dosage: 1DF, ONE TIME DOSE
     Route: 047
     Dates: start: 201311, end: 201311
  2. LOSARTAN [Concomitant]
     Indication: HYPERTENSION
  3. VENTOLIN                           /00139501/ [Concomitant]
     Indication: ASTHMA

REACTIONS (8)
  - Vision blurred [Recovered/Resolved with Sequelae]
  - Colour blindness acquired [Recovered/Resolved with Sequelae]
  - Metamorphopsia [Recovered/Resolved with Sequelae]
  - Visual acuity reduced [Recovered/Resolved with Sequelae]
  - Night blindness [Recovered/Resolved with Sequelae]
  - Visual impairment [Unknown]
  - Visual impairment [Unknown]
  - Visual impairment [Unknown]
